FAERS Safety Report 14855943 (Version 12)
Quarter: 2019Q3

REPORT INFORMATION
  Report Type: Report from Study
  Country: US (occurrence: US)
  Receive Date: 20180507
  Receipt Date: 20190731
  Transmission Date: 20191004
  Serious: Yes (Hospitalization, Other)
  Sender: FDA-Public Use
  Company Number: US-ACTELION-A-NJ2018-171703

PATIENT
  Age: 53 Year
  Sex: Female
  Weight: 54.42 kg

DRUGS (13)
  1. UPTRAVI [Suspect]
     Active Substance: SELEXIPAG
     Dosage: UNK
     Route: 048
     Dates: start: 20171211
  2. SEROQUEL [Concomitant]
     Active Substance: QUETIAPINE FUMARATE
  3. OPSUMIT [Suspect]
     Active Substance: MACITENTAN
     Indication: PULMONARY ARTERIAL HYPERTENSION
     Dosage: 10 MG, QD
     Route: 048
     Dates: start: 20171010
  4. LASIX [Concomitant]
     Active Substance: FUROSEMIDE
     Dosage: 60 MG, QD
  5. ADCIRCA [Concomitant]
     Active Substance: TADALAFIL
  6. MYCOPHENOLATE MOFETIL. [Concomitant]
     Active Substance: MYCOPHENOLATE MOFETIL
     Dosage: 250 MG, UNK
  7. METOPROLOL TARTRATE. [Concomitant]
     Active Substance: METOPROLOL TARTRATE
     Dosage: 25 MG, BID
  8. LASIX [Concomitant]
     Active Substance: FUROSEMIDE
     Indication: FLUID RETENTION
     Dosage: 40 MG, QD
  9. LOPRESSOR [Concomitant]
     Active Substance: METOPROLOL TARTRATE
     Dosage: 25 MG, BID
  10. BUDESONIDE W/FORMOTEROL [Concomitant]
     Active Substance: BUDESONIDE\FORMOTEROL
     Dosage: 160-4.5 MCG/ACTUATION, INHALE 2 PUFFS ONE TIME EACH DAY
  11. UPTRAVI [Suspect]
     Active Substance: SELEXIPAG
     Indication: PULMONARY ARTERIAL HYPERTENSION
     Dosage: 1600 MCG, BID
     Route: 048
     Dates: start: 2018
  12. ALBUTEROL. [Concomitant]
     Active Substance: ALBUTEROL
     Indication: WHEEZING
     Dosage: 5 MG/ML, 2.5 MG BY NEBULIZER Q6 PRN
  13. UPTRAVI [Suspect]
     Active Substance: SELEXIPAG
     Dosage: 800 MCG, BID
     Route: 048
     Dates: start: 2018

REACTIONS (22)
  - Dyspnoea [Recovered/Resolved]
  - Nausea [Recovered/Resolved]
  - Cardiac failure congestive [Unknown]
  - Oedema peripheral [Recovered/Resolved]
  - Hypertension [Unknown]
  - Hospitalisation [Unknown]
  - Vomiting [Recovered/Resolved]
  - Fluid retention [Unknown]
  - Weight increased [Recovered/Resolved]
  - Intestinal obstruction [Recovered/Resolved]
  - Enterocolitis [Recovered/Resolved]
  - Oxygen saturation decreased [Recovering/Resolving]
  - Cardiomyopathy [Unknown]
  - Malaise [Recovered/Resolved]
  - Viral infection [Unknown]
  - Pneumonia [Unknown]
  - Constipation [Recovered/Resolved]
  - Chest pain [Recovered/Resolved]
  - Lung disorder [Unknown]
  - Weight decreased [Recovered/Resolved]
  - Eating disorder [Recovered/Resolved]
  - Abdominal pain [Recovered/Resolved]

NARRATIVE: CASE EVENT DATE: 20180406
